FAERS Safety Report 8482806-5 (Version None)
Quarter: 2012Q3

REPORT INFORMATION
  Report Type: 
  Country: None (occurrence: None)
  Receive Date: 20120702
  Receipt Date: 20120621
  Transmission Date: 20120928
  Serious: Yes (Hospitalization, Other)
  Sender: FDA-Public Use
  Company Number: US-ASTRAZENECA-2012SE41854

PATIENT
  Age: 45 Year
  Sex: Male
  Weight: 122.5 kg

DRUGS (3)
  1. NEXIUM [Suspect]
     Indication: GASTROOESOPHAGEAL REFLUX DISEASE
     Route: 048
  2. DILTIAZEM HYDROCHOLORIDE [Concomitant]
     Indication: BLOOD PRESSURE MANAGEMENT
  3. LISINOPRIL [Suspect]
     Route: 048

REACTIONS (2)
  - INTENTIONAL DRUG MISUSE [None]
  - DIVERTICULITIS [None]
